FAERS Safety Report 7063251-6 (Version None)
Quarter: 2010Q4

REPORT INFORMATION
  Report Type: 
  Country: None (occurrence: None)
  Receive Date: 20101026
  Receipt Date: 20100610
  Transmission Date: 20110411
  Serious: No
  Sender: FDA-Public Use
  Company Number: US-PFIZER INC-2010073765

PATIENT
  Sex: Female

DRUGS (4)
  1. LIPITOR [Suspect]
     Indication: BLOOD CHOLESTEROL INCREASED
     Dosage: 10 MG, DAILY
     Route: 048
     Dates: start: 20100301
  2. LISINOPRIL [Concomitant]
     Indication: BLOOD PRESSURE INCREASED
     Dosage: UNK
  3. COREG [Concomitant]
     Indication: ARTERIAL DISORDER
     Dosage: UNK
  4. PLAVIX [Concomitant]
     Indication: ARTERIAL DISORDER
     Dosage: UNK

REACTIONS (1)
  - ALOPECIA [None]
